FAERS Safety Report 7457861-1 (Version None)
Quarter: 2011Q2

REPORT INFORMATION
  Report Type: 
  Country: None (occurrence: None)
  Receive Date: 20110504
  Receipt Date: 20110422
  Transmission Date: 20111010
  Serious: Yes (Hospitalization)
  Sender: FDA-Public Use
  Company Number: PHHY2011JP29940

PATIENT
  Sex: Male

DRUGS (9)
  1. BEZATOL - SLOW RELEASE [Concomitant]
     Dosage: 400 MG, UNK
     Route: 048
     Dates: start: 20030101
  2. URINORM [Concomitant]
     Dosage: 50 MG, UNK
     Route: 048
     Dates: start: 20030101
  3. TASIGNA [Suspect]
     Indication: CHRONIC MYELOID LEUKAEMIA
     Dosage: 800 MG, DAILY
     Route: 048
     Dates: start: 20110331, end: 20110403
  4. ASPIRIN [Concomitant]
  5. FAMOTIDINE [Concomitant]
  6. CONIEL [Concomitant]
     Dosage: 4 MG, UNK
     Route: 048
     Dates: start: 20030101
  7. HERBESSOR R [Concomitant]
     Dosage: 100 MG, UNK
     Route: 048
     Dates: start: 20030101
  8. NU-LOTAN [Concomitant]
     Dosage: 12.5 MG, UNK
     Route: 048
     Dates: start: 20030101
  9. WARFARIN SODIUM [Concomitant]
     Dosage: 2 MG, UNK
     Route: 048
     Dates: start: 20030101

REACTIONS (5)
  - ABDOMINAL PAIN [None]
  - LIPASE INCREASED [None]
  - PYREXIA [None]
  - PANCREATITIS [None]
  - BLOOD AMYLASE INCREASED [None]
